FAERS Safety Report 15745273 (Version 1)
Quarter: 2018Q4

REPORT INFORMATION
  Report Type: Spontaneous
  Country: US (occurrence: US)
  Receive Date: 20181220
  Receipt Date: 20181220
  Transmission Date: 20190205
  Serious: Yes (Other)
  Sender: FDA-Public Use
  Company Number: US-SA-2018SA343425

PATIENT
  Age: 62 Year
  Sex: Female
  Weight: 81.7 kg

DRUGS (7)
  1. PERJETA [Concomitant]
     Active Substance: PERTUZUMAB
     Dosage: UNK
     Dates: start: 20180924
  2. HERCEPTIN [Concomitant]
     Active Substance: TRASTUZUMAB
     Dosage: UNK
     Dates: start: 20180924
  3. ALLEGRA [Suspect]
     Active Substance: FEXOFENADINE HYDROCHLORIDE
     Indication: RESPIRATORY FATIGUE
  4. FAULDCARBO [Concomitant]
     Active Substance: CARBOPLATIN
     Dosage: UNK
     Dates: start: 20180924
  5. ALLEGRA [Suspect]
     Active Substance: FEXOFENADINE HYDROCHLORIDE
     Indication: DYSPHONIA
     Dosage: 180 MG, UNK
     Route: 065
     Dates: start: 201809
  6. ALLEGRA [Suspect]
     Active Substance: FEXOFENADINE HYDROCHLORIDE
     Indication: PHARYNGITIS
  7. TAXOTERE [Concomitant]
     Active Substance: DOCETAXEL
     Dosage: UNK
     Dates: start: 20180924

REACTIONS (2)
  - Condition aggravated [Unknown]
  - Lung disorder [Unknown]
